FAERS Safety Report 15049026 (Version 3)
Quarter: 2018Q3

REPORT INFORMATION
  Report Type: Report from Study
  Country: JP (occurrence: JP)
  Receive Date: 20180622
  Receipt Date: 20180911
  Transmission Date: 20181010
  Serious: Yes (Death, Life-Threatening, Hospitalization, Other)
  Sender: FDA-Public Use
  Company Number: JP-ACTELION-A-CH2017-153936

PATIENT
  Age: 24 Year
  Sex: Female

DRUGS (19)
  1. SPIRONOLACTON [Concomitant]
     Active Substance: SPIRONOLACTONE
  2. TANATRIL [Concomitant]
     Active Substance: IMIDAPRIL
  3. ADEMPAS [Concomitant]
     Active Substance: RIOCIGUAT
     Indication: PULMONARY ARTERIAL HYPERTENSION
  4. BERASUS [Concomitant]
     Active Substance: BERAPROST SODIUM
  5. OPSUMIT [Suspect]
     Active Substance: MACITENTAN
     Indication: PULMONARY ARTERIAL HYPERTENSION
     Dosage: 10 MG, QD
     Route: 048
  6. FUROSEMIDE. [Concomitant]
     Active Substance: FUROSEMIDE
  7. UPTRAVI [Suspect]
     Active Substance: SELEXIPAG
     Indication: PULMONARY ARTERIAL HYPERTENSION
     Dosage: UNK
     Route: 048
     Dates: start: 20171229
  8. ADCIRCA [Concomitant]
     Active Substance: TADALAFIL
  9. FERROMIA [Concomitant]
     Active Substance: SODIUM FERROUS CITRATE
  10. TEPRENONE [Concomitant]
     Active Substance: TEPRENONE
  11. UPTRAVI [Suspect]
     Active Substance: SELEXIPAG
     Dosage: 0.8 MG, QD
     Route: 048
  12. LUPRAC [Concomitant]
     Active Substance: TORSEMIDE
  13. VENTAVIS [Concomitant]
     Active Substance: ILOPROST
     Indication: PULMONARY ARTERIAL HYPERTENSION
  14. OPSUMIT [Suspect]
     Active Substance: MACITENTAN
     Dosage: 5 UNK, UNK
     Route: 048
  15. FERROUS CITRATE NA [Concomitant]
     Active Substance: SODIUM FERROUS CITRATE
  16. UPTRAVI [Suspect]
     Active Substance: SELEXIPAG
     Dosage: 0.4 MG, BID
     Route: 048
  17. UPTRAVI [Suspect]
     Active Substance: SELEXIPAG
     Dosage: 0.6 MG, BID
     Route: 048
     Dates: start: 20180209
  18. FAMOTIDINE. [Concomitant]
     Active Substance: FAMOTIDINE
  19. OXYGEN. [Concomitant]
     Active Substance: OXYGEN

REACTIONS (16)
  - Back pain [Recovered/Resolved]
  - Musculoskeletal pain [Recovering/Resolving]
  - Renal failure [Not Recovered/Not Resolved]
  - Oedema [Not Recovered/Not Resolved]
  - Ascites [Not Recovered/Not Resolved]
  - Red blood cell count decreased [Recovered/Resolved]
  - Haematemesis [Unknown]
  - White blood cell count decreased [Not Recovered/Not Resolved]
  - Melaena [Recovered/Resolved]
  - Death [Fatal]
  - Blood pressure decreased [Not Recovered/Not Resolved]
  - Transfusion [Unknown]
  - Hypotension [Not Recovered/Not Resolved]
  - Pain in jaw [Recovering/Resolving]
  - Haemoglobin decreased [Recovered/Resolved]
  - Diarrhoea [Not Recovered/Not Resolved]

NARRATIVE: CASE EVENT DATE: 20160902
